FAERS Safety Report 7269696-3 (Version None)
Quarter: 2011Q1

REPORT INFORMATION
  Report Type: 
  Country: None (occurrence: None)
  Receive Date: 20110202
  Receipt Date: 20110128
  Transmission Date: 20110831
  Serious: Yes (Death, Other)
  Sender: FDA-Public Use
  Company Number: JP-JNJFOC-20101206661

PATIENT
  Age: 33 Year
  Sex: Female
  Weight: 100 kg

DRUGS (8)
  1. QUAZEPAM [Concomitant]
     Route: 048
  2. RISPERDAL [Suspect]
     Route: 048
  3. SILECE [Suspect]
     Indication: ILL-DEFINED DISORDER
     Route: 048
  4. BROTIZOLAM [Concomitant]
     Indication: INSOMNIA
     Route: 048
  5. BROTIZOLAM [Concomitant]
     Route: 048
  6. RISPERDAL [Suspect]
     Indication: SCHIZOPHRENIA
     Route: 048
  7. QUAZEPAM [Concomitant]
     Indication: INSOMNIA
     Route: 048
  8. RISPERDAL CONSTA [Suspect]
     Indication: SCHIZOPHRENIA
     Route: 030

REACTIONS (3)
  - SUDDEN DEATH [None]
  - OBESITY [None]
  - HYPERPROLACTINAEMIA [None]
